FAERS Safety Report 12409241 (Version 2)
Quarter: 2016Q3

REPORT INFORMATION
  Report Type: Report from Study
  Country: RO (occurrence: RO)
  Receive Date: 20160526
  Receipt Date: 20160701
  Transmission Date: 20161109
  Serious: Yes (Death, Life-Threatening, Hospitalization, Disabling)
  Sender: FDA-Public Use
  Company Number: RO-KADMON PHARMACEUTICALS, LLC-KAD201605-001905

PATIENT
  Age: 63 Year
  Sex: Male

DRUGS (10)
  1. EXVIERA [Suspect]
     Active Substance: DASABUVIR
     Indication: HEPATIC CIRRHOSIS
  2. FUROSEMID [Concomitant]
     Active Substance: FUROSEMIDE
  3. RIBAVIRIN. [Suspect]
     Active Substance: RIBAVIRIN
     Indication: HEPATIC CIRRHOSIS
  4. SPIRONOLACTONE. [Concomitant]
     Active Substance: SPIRONOLACTONE
     Route: 048
  5. EXVIERA [Suspect]
     Active Substance: DASABUVIR
     Indication: HEPATITIS C
     Dosage: FILM-COATED TABLET, 1 IN THE MORNING AND EVENING (1-0-1)
     Route: 048
     Dates: start: 20160314, end: 20160516
  6. VIEKIRAX [Suspect]
     Active Substance: OMBITASVIR\PARITAPREVIR\RITONAVIR
     Indication: HEPATIC CIRRHOSIS
  7. TERTENSIF [Concomitant]
     Indication: HYPERTENSION
     Dosage: TABLET
     Route: 048
  8. NORVASC [Concomitant]
     Active Substance: AMLODIPINE BESYLATE
     Indication: HYPERTENSION
     Dosage: TABLET
     Route: 048
  9. VIEKIRAX [Suspect]
     Active Substance: OMBITASVIR\PARITAPREVIR\RITONAVIR
     Indication: HEPATITIS C
     Dosage: FILM-COATED TABLET
     Route: 048
     Dates: start: 20160314, end: 20160516
  10. RIBAVIRIN. [Suspect]
     Active Substance: RIBAVIRIN
     Indication: HEPATITIS C
     Dosage: FILM-COATED TABLET
     Route: 048
     Dates: start: 20160314, end: 20160415

REACTIONS (15)
  - Ascites [Unknown]
  - Enterocolitis [Unknown]
  - Hepatic failure [Unknown]
  - Oedema peripheral [Unknown]
  - Diarrhoea [Unknown]
  - Vomiting [Unknown]
  - Coagulopathy [Unknown]
  - Hepatic failure [Fatal]
  - Flatulence [Unknown]
  - Abdominal pain [Unknown]
  - Nausea [Unknown]
  - Peritonitis bacterial [Fatal]
  - Abdominal distension [Unknown]
  - Upper limb fracture [Unknown]
  - Generalised oedema [Fatal]

NARRATIVE: CASE EVENT DATE: 20150606
